FAERS Safety Report 4537641-7 (Version None)
Quarter: 2004Q4

REPORT INFORMATION
  Report Type: 
  Country: None (occurrence: None)
  Receive Date: 20041223
  Receipt Date: 20041215
  Transmission Date: 20050328
  Serious: Yes (Hospitalization, Disabling)
  Sender: FDA-Public Use
  Company Number: US-MERCK-0412USA01951

PATIENT
  Age: 62 Year
  Sex: Male

DRUGS (2)
  1. VIOXX [Suspect]
     Indication: ARTHRITIS
     Route: 048
     Dates: start: 20000101, end: 20020101
  2. MOTRIN [Concomitant]
     Route: 065

REACTIONS (5)
  - DYSPEPSIA [None]
  - HAEMATOCHEZIA [None]
  - HAEMORRHAGE [None]
  - MYOCARDIAL INFARCTION [None]
  - PAIN [None]
